FAERS Safety Report 6150356-7 (Version None)
Quarter: 2009Q2

REPORT INFORMATION
  Report Type: 
  Country: None (occurrence: None)
  Receive Date: 20090409
  Receipt Date: 20090401
  Transmission Date: 20091009
  Serious: Yes (Hospitalization)
  Sender: FDA-Public Use
  Company Number: US-GENENTECH-280376

PATIENT
  Sex: Female
  Weight: 69.841 kg

DRUGS (3)
  1. BEVACIZUMAB [Suspect]
     Indication: NON-SMALL CELL LUNG CANCER
     Dosage: 15 MG/KG, Q3W
     Dates: start: 20090306
  2. CARBOPLATIN [Suspect]
     Indication: NON-SMALL CELL LUNG CANCER
     Dosage: 6 AUC, Q3W
     Dates: start: 20090306
  3. IXABEPILONE [Suspect]
     Indication: NON-SMALL CELL LUNG CANCER
     Dosage: 30 MG/M2, Q3W
     Dates: start: 20090306

REACTIONS (2)
  - ATRIAL FIBRILLATION [None]
  - LEFT VENTRICULAR DYSFUNCTION [None]
